FAERS Safety Report 10101985 (Version 2)
Quarter: 2014Q2

REPORT INFORMATION
  Report Type: Report from Study
  Country: AU (occurrence: AU)
  Receive Date: 20140424
  Receipt Date: 20140425
  Transmission Date: 20141212
  Serious: Yes (Other)
  Sender: FDA-Public Use
  Company Number: PHHY2014AU049634

PATIENT
  Sex: Female

DRUGS (1)
  1. CLOZARIL [Suspect]
     Dosage: 37.5 MG, UNK
     Dates: start: 20140327, end: 20140416

REACTIONS (2)
  - Ataxia [Unknown]
  - Asthenia [Unknown]
